FAERS Safety Report 9956627 (Version 1)
Quarter: 2014Q1

REPORT INFORMATION
  Report Type: Spontaneous
  Country: US (occurrence: US)
  Receive Date: 20140304
  Receipt Date: 20140304
  Transmission Date: 20141002
  Serious: No
  Sender: FDA-Public Use
  Company Number: US-ABBVIE-13P-163-1099051-00

PATIENT
  Age: 61 Year
  Sex: Male
  Weight: 100.79 kg

DRUGS (12)
  1. HUMIRA [Suspect]
     Indication: RHEUMATOID ARTHRITIS
     Dates: start: 2010
  2. VITAMIN D [Concomitant]
     Indication: VITAMIN SUPPLEMENTATION
  3. SULFASALAZINE [Concomitant]
     Indication: RHEUMATOID ARTHRITIS
  4. ASPIRIN [Concomitant]
     Indication: VITAMIN SUPPLEMENTATION
  5. TAMSULOSIN HCL [Concomitant]
     Indication: PRODUCT USED FOR UNKNOWN INDICATION
  6. FOLIC ACID [Concomitant]
     Indication: RHEUMATOID ARTHRITIS
  7. LISINOPRIL [Concomitant]
     Indication: HYPERTENSION
  8. SYNTHROID [Concomitant]
     Indication: HYPOTHYROIDISM
  9. DILTIAZEM [Concomitant]
     Indication: HYPERTENSION
  10. XANAX [Concomitant]
     Indication: PANIC ATTACK
  11. FISH OIL [Concomitant]
     Indication: VITAMIN SUPPLEMENTATION
  12. CENTRUM [Concomitant]
     Indication: VITAMIN SUPPLEMENTATION

REACTIONS (4)
  - Poor quality drug administered [Recovered/Resolved]
  - Incorrect product storage [Recovered/Resolved]
  - Rheumatoid arthritis [Not Recovered/Not Resolved]
  - Drug ineffective [Not Recovered/Not Resolved]
